FAERS Safety Report 5918684-5 (Version None)
Quarter: 2008Q4

REPORT INFORMATION
  Report Type: 
  Country: None (occurrence: None)
  Receive Date: 20081015
  Receipt Date: 20080603
  Transmission Date: 20090506
  Serious: No
  Sender: FDA-Public Use
  Company Number: US-ASTRAZENECA-2008UW11187

PATIENT
  Age: 45 Year
  Sex: Female
  Weight: 129.3 kg

DRUGS (9)
  1. SYMBICORT [Suspect]
     Indication: ASTHMA
     Dosage: 80/4.5 MCG 2 PUFFS BID
     Route: 055
     Dates: start: 20080401
  2. METFORMIN [Concomitant]
  3. ACTOS [Concomitant]
  4. MECAPTOPURINE [Concomitant]
  5. ZOLOFT [Concomitant]
  6. LOVASTATIN [Concomitant]
  7. DIAMOX [Concomitant]
  8. BENECAR [Concomitant]
  9. NEXIUM [Concomitant]
     Route: 048

REACTIONS (2)
  - CHEST DISCOMFORT [None]
  - DYSPEPSIA [None]
